FAERS Safety Report 5912128-5 (Version None)
Quarter: 2008Q4

REPORT INFORMATION
  Report Type: 
  Country: None (occurrence: None)
  Receive Date: 20081006
  Receipt Date: 20080919
  Transmission Date: 20090506
  Serious: Yes (Congenital Anomaly)
  Sender: FDA-Public Use
  Company Number: 1000001124

PATIENT
  Sex: Female
  Weight: 3.26 kg

DRUGS (3)
  1. ESCITALOPRAM [Suspect]
     Dosage: 10 MG (10 MG, 1 IN 1 D),TRANSPLACENTAL
     Route: 064
     Dates: end: 20080906
  2. IMOVANE (5 MILLIGRAM) [Concomitant]
  3. VALLERGAN (10 MILLIGRAM) [Concomitant]

REACTIONS (2)
  - CONGENITAL HAND MALFORMATION [None]
  - MATERNAL DRUGS AFFECTING FOETUS [None]
